FAERS Safety Report 10145992 (Version 2)
Quarter: 2014Q2

REPORT INFORMATION
  Report Type: Spontaneous
  Country: US (occurrence: US)
  Receive Date: 20140501
  Receipt Date: 20140508
  Transmission Date: 20141212
  Serious: Yes (Hospitalization, Disabling)
  Sender: FDA-Public Use
  Company Number: US-BAYER-2014-062944

PATIENT
  Age: 30 Year
  Sex: Female
  Weight: 102 kg

DRUGS (6)
  1. YASMIN [Suspect]
     Dosage: UNK
     Dates: start: 20070716
  2. CIPROFLOXACIN [Concomitant]
     Dosage: 500 MG, UNK
  3. KEFLEX [Concomitant]
  4. CIPRO [Concomitant]
     Dosage: 500 Q 12 HR
  5. ATENOLOL [Concomitant]
     Dosage: 50 MG, QD
  6. PROVENTIL [Concomitant]

REACTIONS (10)
  - Intracardiac thrombus [None]
  - Pulmonary embolism [None]
  - Chest pain [None]
  - Dyspnoea [None]
  - Injury [None]
  - Pain [None]
  - Anxiety [None]
  - Fear of disease [None]
  - Pain [None]
  - Emotional distress [None]
